FAERS Safety Report 7979578-7 (Version None)
Quarter: 2011Q4

REPORT INFORMATION
  Report Type: 
  Country: None (occurrence: None)
  Receive Date: 20111214
  Receipt Date: 20111205
  Transmission Date: 20120403
  Serious: Yes (Death, Hospitalization)
  Sender: FDA-Public Use
  Company Number: JP-AMGEN-JPNCT2011009996

PATIENT
  Age: 79 Year
  Sex: Male
  Weight: 57 kg

DRUGS (11)
  1. PANITUMUMAB [Suspect]
     Indication: COLORECTAL CANCER
     Dosage: 6 MG/KG, Q2WK
     Route: 041
     Dates: start: 20101115, end: 20101227
  2. CORTICOSTEROIDS [Concomitant]
     Indication: PROPHYLAXIS
     Dosage: UNK
     Route: 065
  3. DECADRON [Concomitant]
     Indication: VOMITING
     Route: 048
     Dates: start: 20101115
  4. HARNAL D [Concomitant]
     Indication: NEUROGENIC BLADDER
     Dosage: 0.2 MG, QD
     Route: 048
     Dates: start: 20101115
  5. UBRETID [Concomitant]
     Indication: NEUROGENIC BLADDER
     Dosage: 5 MG, QD
     Route: 048
     Dates: start: 20101115
  6. LEVOLEUCOVORIN CALCIUM [Concomitant]
     Indication: COLORECTAL CANCER
     Route: 041
     Dates: start: 20101115, end: 20101227
  7. FLUOROURACIL [Concomitant]
     Indication: COLORECTAL CANCER
     Dosage: 450 MG, Q2WK
     Route: 040
     Dates: start: 20101115, end: 20101227
  8. TOPOTECAN [Suspect]
     Indication: COLORECTAL CANCER
     Dosage: 160 MG, Q2WK
     Route: 041
     Dates: start: 20101115, end: 20101227
  9. ASPIRIN [Concomitant]
     Indication: CEREBRAL INFARCTION
     Dosage: 100 MG, QD
     Route: 048
     Dates: start: 20101115
  10. ANTIHISTAMINES [Concomitant]
     Indication: PROPHYLAXIS
     Dosage: UNK
     Route: 065
  11. FLUOROURACIL [Concomitant]
     Dosage: 2500 MG, Q2WK
     Route: 041
     Dates: start: 20101115, end: 20101227

REACTIONS (3)
  - COLORECTAL CANCER [None]
  - INTERSTITIAL LUNG DISEASE [None]
  - HYPOCALCAEMIA [None]
